FAERS Safety Report 14714680 (Version 1)
Quarter: 2018Q2

REPORT INFORMATION
  Report Type: Spontaneous
  Country: US (occurrence: US)
  Receive Date: 20180404
  Receipt Date: 20180404
  Transmission Date: 20180711
  Serious: Yes (Death)
  Sender: FDA-Public Use
  Company Number: US-PFIZER INC-2018108362

PATIENT
  Age: 13 Year
  Sex: Male

DRUGS (3)
  1. INLYTA [Suspect]
     Active Substance: AXITINIB
     Indication: RENAL NEOPLASM
     Dosage: 3 MG, 2X/DAY
  2. INLYTA [Suspect]
     Active Substance: AXITINIB
     Indication: METASTASES TO LUNG
     Dosage: 1 MG, UNK
  3. INLYTA [Suspect]
     Active Substance: AXITINIB
     Indication: METASTASES TO LIVER

REACTIONS (1)
  - Death [Fatal]

NARRATIVE: CASE EVENT DATE: 20180331
